FAERS Safety Report 8593404-7 (Version None)
Quarter: 2012Q3

REPORT INFORMATION
  Report Type: 
  Country: None (occurrence: None)
  Receive Date: 20120814
  Receipt Date: 20120808
  Transmission Date: 20120928
  Serious: Yes (Other)
  Sender: FDA-Public Use
  Company Number: PHHY2012JP048192

PATIENT
  Sex: Female

DRUGS (9)
  1. VERAPAMIL [Suspect]
     Dosage: 120 MG, DAILY
     Dates: start: 20120530
  2. GILENYA [Suspect]
     Indication: RELAPSING-REMITTING MULTIPLE SCLEROSIS
     Dosage: 0.5 MG, DAILY
     Route: 048
     Dates: start: 20120530
  3. RANITIDINE [Concomitant]
     Dosage: 300 MG, DAILY
     Route: 048
  4. SOLIFENACIN SUCCINATE [Concomitant]
     Dosage: 5 MG, DAILY
     Route: 048
  5. CLONAZEPAM [Concomitant]
     Dosage: 0.5 MG, DAILY
     Route: 048
  6. MENATETRENONE [Concomitant]
     Dosage: 45 MG, DAILY
     Route: 048
  7. MECOBALAMIN [Concomitant]
     Dosage: 1500 UG, DAILY
  8. MAGNESIUM OXIDE [Concomitant]
     Dosage: 990 MG, DAILY
     Route: 048
  9. PRAVASTATIN [Concomitant]
     Indication: HYPERLIPIDAEMIA
     Dosage: 10 MG, DAILY
     Route: 048

REACTIONS (7)
  - ELECTROCARDIOGRAM CHANGE [None]
  - LYMPHOCYTE COUNT DECREASED [None]
  - ELECTROCARDIOGRAM LOW VOLTAGE [None]
  - BRADYCARDIA [None]
  - HYPERTENSION [None]
  - WHITE BLOOD CELL COUNT DECREASED [None]
  - ELECTROCARDIOGRAM T WAVE INVERSION [None]
